FAERS Safety Report 4381575-8 (Version None)
Quarter: 2004Q2

REPORT INFORMATION
  Report Type: 
  Country: None (occurrence: None)
  Receive Date: 20040616
  Receipt Date: 20040603
  Transmission Date: 20050107
  Serious: Yes (Life-Threatening, Hospitalization)
  Sender: FDA-Public Use
  Company Number: 206389

PATIENT
  Age: 67 Year
  Sex: Female
  Weight: 63.5 kg

DRUGS (2)
  1. RITUXAN [Suspect]
     Indication: NON-HODGKIN'S LYMPHOMA
     Dosage: 600 MG, 1 WEEK, INTRAVENOUS
     Route: 042
     Dates: start: 20040429
  2. PROTONIX [Concomitant]

REACTIONS (5)
  - COAGULOPATHY [None]
  - FIBRIN D DIMER INCREASED [None]
  - GASTROINTESTINAL HAEMORRHAGE [None]
  - INTERNATIONAL NORMALISED RATIO INCREASED [None]
  - THROMBOCYTOPENIA [None]
